FAERS Safety Report 11303382 (Version 1)
Quarter: 2015Q3

REPORT INFORMATION
  Report Type: Spontaneous
  Country: US (occurrence: US)
  Receive Date: 20150723
  Receipt Date: 20150723
  Transmission Date: 20151125
  Serious: No
  Sender: FDA-Public Use
  Company Number: US-JNJFOC-20141016402

PATIENT
  Sex: Female

DRUGS (11)
  1. MUCINEX [Suspect]
     Active Substance: GUAIFENESIN
     Indication: RHINITIS ALLERGIC
     Route: 065
  2. OMNARIS [Suspect]
     Active Substance: CICLESONIDE
     Indication: RHINITIS ALLERGIC
     Route: 065
  3. CLARITIN [Suspect]
     Active Substance: LORATADINE
     Indication: RHINITIS ALLERGIC
     Route: 065
  4. ALLEGRA [Suspect]
     Active Substance: FEXOFENADINE HYDROCHLORIDE
     Indication: RHINITIS ALLERGIC
     Route: 065
  5. ELDERBERRY [Suspect]
     Active Substance: HERBALS
     Indication: RHINITIS ALLERGIC
     Route: 065
  6. HONEY [Suspect]
     Active Substance: HONEY
     Indication: RHINITIS ALLERGIC
     Route: 065
  7. ZYRTEC [Suspect]
     Active Substance: CETIRIZINE HYDROCHLORIDE
     Indication: RHINITIS ALLERGIC
     Route: 065
  8. NASONEX [Suspect]
     Active Substance: MOMETASONE FUROATE
     Indication: RHINITIS ALLERGIC
     Route: 065
  9. OTHER THERAPEUTIC MEDICATION [Suspect]
     Active Substance: UNSPECIFIED INGREDIENT
     Indication: RHINITIS ALLERGIC
     Route: 065
  10. ZYRTEC [Suspect]
     Active Substance: CETIRIZINE HYDROCHLORIDE
     Route: 065
  11. NASOCORT [Suspect]
     Active Substance: BUDESONIDE
     Indication: RHINITIS ALLERGIC
     Route: 065

REACTIONS (1)
  - Drug ineffective [Unknown]
